FAERS Safety Report 16290454 (Version 2)
Quarter: 2019Q3

REPORT INFORMATION
  Report Type: Spontaneous
  Country: FR (occurrence: FR)
  Receive Date: 20190509
  Receipt Date: 20190726
  Transmission Date: 20191004
  Serious: Yes (Other)
  Sender: FDA-Public Use
  Company Number: FR-009507513-1905FRA001841

PATIENT
  Age: 74 Year
  Sex: Male

DRUGS (6)
  1. CANCIDAS [Suspect]
     Active Substance: CASPOFUNGIN ACETATE
     Indication: SEPSIS
     Route: 042
     Dates: start: 20190304, end: 20190307
  2. LOVENOX [Concomitant]
     Active Substance: ENOXAPARIN SODIUM
     Route: 058
     Dates: start: 201902
  3. VANCOMYCIN MYLAN [Suspect]
     Active Substance: VANCOMYCIN
     Indication: SEPSIS
     Dosage: 1, QD
     Route: 041
     Dates: start: 20190304, end: 20190307
  4. TAZOCILLINE [Suspect]
     Active Substance: PIPERACILLIN SODIUM\TAZOBACTAM SODIUM
     Indication: SEPSIS
     Route: 042
     Dates: start: 20190225, end: 20190304
  5. NOREPINEPHRINE. [Concomitant]
     Active Substance: NOREPINEPHRINE
     Dates: start: 20190303
  6. EUPANTOL [Concomitant]
     Active Substance: PANTOPRAZOLE SODIUM
     Route: 042
     Dates: start: 20190302

REACTIONS (2)
  - Antibiotic level above therapeutic [Recovered/Resolved]
  - Acute kidney injury [Recovering/Resolving]

NARRATIVE: CASE EVENT DATE: 20190305
